FAERS Safety Report 11165271 (Version 1)
Quarter: 2015Q2

REPORT INFORMATION
  Report Type: Spontaneous
  Country: US (occurrence: US)
  Receive Date: 20150604
  Receipt Date: 20150604
  Transmission Date: 20150821
  Serious: No
  Sender: FDA-Public Use
  Company Number: US-PFIZER INC-2015186348

PATIENT
  Sex: Male

DRUGS (1)
  1. EMBEDA [Suspect]
     Active Substance: MORPHINE SULFATE\NALTREXONE HYDROCHLORIDE
     Indication: NECK INJURY
     Dosage: UNK
     Dates: start: 20150512

REACTIONS (3)
  - Drug ineffective [Unknown]
  - Medication residue present [Not Recovered/Not Resolved]
  - Product solubility abnormal [Not Recovered/Not Resolved]
